FAERS Safety Report 10061719 (Version 2)
Quarter: 2014Q2

REPORT INFORMATION
  Report Type: Spontaneous
  Country: GB (occurrence: GB)
  Receive Date: 20140407
  Receipt Date: 20140421
  Transmission Date: 20141212
  Serious: Yes (Other)
  Sender: FDA-Public Use
  Company Number: GB-MYLANLABS-2014S1006844

PATIENT
  Sex: Female

DRUGS (4)
  1. METFORMIN HYDROCHLORIDE [Suspect]
     Indication: DIABETES MELLITUS
  2. IBUPROFEN [Interacting]
     Indication: PRODUCT USED FOR UNKNOWN INDICATION
  3. APIXABAN [Interacting]
     Indication: HIP ARTHROPLASTY
  4. APIXABAN [Interacting]
     Indication: KNEE ARTHROPLASTY

REACTIONS (2)
  - Renal failure [Unknown]
  - Drug interaction [Unknown]
